FAERS Safety Report 4525065-8 (Version None)
Quarter: 2004Q4

REPORT INFORMATION
  Report Type: 
  Country: None (occurrence: None)
  Receive Date: 20041210
  Receipt Date: 20041129
  Transmission Date: 20050328
  Serious: Yes (Other)
  Sender: FDA-Public Use
  Company Number: 2004099940

PATIENT
  Sex: Female
  Weight: 72.5755 kg

DRUGS (3)
  1. DILANTIN KAPSEAL [Suspect]
     Indication: EPILEPSY
     Dosage: 500 MG (500 MG, 1 IN 1 D), ORAL
     Route: 048
     Dates: start: 19680101
  2. PHENYTOIN [Suspect]
     Indication: EPILEPSY
     Dosage: 500 MG (500 MG, 1 IN 1 D)
     Dates: end: 20040101
  3. ETHANOL (ETHANOL) [Suspect]
     Indication: ILL-DEFINED DISORDER
     Dosage: ONE TO TWO DRINKS DAILY, ORAL
     Route: 048
     Dates: start: 20041101, end: 20041101

REACTIONS (6)
  - ALCOHOL USE [None]
  - CONDITION AGGRAVATED [None]
  - CONVULSION [None]
  - DRUG EFFECT DECREASED [None]
  - TREATMENT NONCOMPLIANCE [None]
  - WEIGHT INCREASED [None]
